FAERS Safety Report 7568728-2 (Version None)
Quarter: 2011Q2

REPORT INFORMATION
  Report Type: 
  Country: None (occurrence: None)
  Receive Date: 20110617
  Receipt Date: 20110601
  Transmission Date: 20111010
  Serious: Yes (Life-Threatening, Hospitalization)
  Sender: FDA-Public Use
  Company Number: 2011AC000034

PATIENT
  Age: 88 Year
  Sex: Male

DRUGS (5)
  1. DIGOXIN [Suspect]
     Indication: ATRIAL FIBRILLATION
     Dosage: 250 UG;PO
     Route: 048
     Dates: start: 20021015, end: 20110506
  2. TANSULOSIN [Concomitant]
  3. FUROSEMIDE [Concomitant]
  4. WARFARIN SODIUM [Concomitant]
  5. SIMVASTATIN [Concomitant]

REACTIONS (2)
  - VOMITING [None]
  - NAUSEA [None]
